FAERS Safety Report 14993311 (Version 1)
Quarter: 2018Q2

REPORT INFORMATION
  Report Type: Spontaneous
  Country: IT (occurrence: IT)
  Receive Date: 20180610
  Receipt Date: 20180610
  Transmission Date: 20180711
  Serious: Yes (Death, Other)
  Sender: FDA-Public Use
  Company Number: PHHY2018IT018458

PATIENT
  Age: 23 Year
  Sex: Female

DRUGS (5)
  1. METHOTREXATE. [Suspect]
     Active Substance: METHOTREXATE
     Indication: CONGENITAL POIKILODERMA
     Dosage: 12 G/M2, UNK
     Route: 065
  2. CISPLATIN. [Suspect]
     Active Substance: CISPLATIN
     Indication: CONGENITAL POIKILODERMA
     Route: 065
  3. MIFAMURTIDE [Suspect]
     Active Substance: MIFAMURTIDE
     Indication: CONGENITAL POIKILODERMA
     Route: 065
  4. ADRIAMYCIN [Suspect]
     Active Substance: DOXORUBICIN HYDROCHLORIDE
     Indication: CONGENITAL POIKILODERMA
     Dosage: 25 MG/M2, UNK
     Route: 065
  5. IFOSFAMIDE. [Suspect]
     Active Substance: IFOSFAMIDE
     Indication: CONGENITAL POIKILODERMA
     Dosage: 1800 UNK, UNK
     Route: 065

REACTIONS (14)
  - Hepatic failure [Fatal]
  - Mucosal inflammation [Fatal]
  - Toxic epidermal necrolysis [Fatal]
  - Abdominal pain [Fatal]
  - Sepsis [Fatal]
  - Pneumonia [Fatal]
  - Erythema [Fatal]
  - Stomatitis [Fatal]
  - Diarrhoea [Fatal]
  - Ulcer [Fatal]
  - Bone marrow failure [Fatal]
  - Hepatic enzyme increased [Fatal]
  - Pyrexia [Fatal]
  - Product use in unapproved indication [Unknown]
